FAERS Safety Report 8299182-3 (Version None)
Quarter: 2012Q2

REPORT INFORMATION
  Report Type: 
  Country: None (occurrence: None)
  Receive Date: 20120419
  Receipt Date: 20120410
  Transmission Date: 20120825
  Serious: Yes (Life-Threatening, Hospitalization)
  Sender: FDA-Public Use
  Company Number: JP-ACTELION-A-CH2012-62299

PATIENT
  Sex: Female
  Weight: 50.8 kg

DRUGS (11)
  1. TOCILIZUMAB [Suspect]
  2. MENATETRENONE [Concomitant]
  3. SULFAMETHOXAZOLE AND TRIMETHOPRIM [Concomitant]
  4. TRACLEER [Suspect]
     Indication: EXTREMITY NECROSIS
     Dosage: 62.5 MG, BID
     Route: 048
     Dates: start: 20111129, end: 20120216
  5. PREDNISOLONE [Concomitant]
  6. ANTIBIOTICS-RESISTANT LACTIC ACID BACTERIAE [Concomitant]
  7. FUROSEMIDE [Concomitant]
  8. RABEPRAZOLE SODIUM [Concomitant]
  9. ALFACALCIDOL [Concomitant]
  10. INDOMETHACIN [Concomitant]
  11. MAGNESIUM OXIDE [Concomitant]

REACTIONS (4)
  - FEMORAL NECK FRACTURE [None]
  - HAEMOGLOBIN DECREASED [None]
  - HAEMATOMA [None]
  - POST PROCEDURAL HAEMORRHAGE [None]
